FAERS Safety Report 9724578 (Version 2)
Quarter: 2014Q1

REPORT INFORMATION
  Report Type: Spontaneous
  Country: US (occurrence: US)
  Receive Date: 20131202
  Receipt Date: 20140102
  Transmission Date: 20141002
  Serious: No
  Sender: FDA-Public Use
  Company Number: US-AMGEN-USASP2013081156

PATIENT
  Age: 55 Year
  Sex: Female
  Weight: 80.73 kg

DRUGS (1)
  1. ENBREL [Suspect]
     Indication: PSORIATIC ARTHROPATHY
     Dosage: 50 MG, QWK
     Route: 058
     Dates: start: 20130906, end: 20131108

REACTIONS (5)
  - Headache [Recovered/Resolved]
  - Mood swings [Recovered/Resolved]
  - Nightmare [Recovered/Resolved]
  - Flushing [Recovered/Resolved]
  - Epistaxis [Recovered/Resolved]
